FAERS Safety Report 7676363-0 (Version None)
Quarter: 2011Q3

REPORT INFORMATION
  Report Type: 
  Country: None (occurrence: None)
  Receive Date: 20110811
  Receipt Date: 20110805
  Transmission Date: 20111222
  Serious: No
  Sender: FDA-Public Use
  Company Number: US-PFIZER INC-2011181101

PATIENT
  Sex: Female
  Weight: 48.526 kg

DRUGS (7)
  1. LOSARTAN POTASSIUM [Suspect]
     Indication: HYPERTENSION
     Dosage: 50 MG, 1X/DAY
     Route: 048
     Dates: end: 20110717
  2. AMLODIPINE BESYLATE [Interacting]
     Dosage: 2.5 MG, 1X/DAY
     Route: 048
     Dates: start: 20110718
  3. AMLODIPINE BESYLATE [Interacting]
     Indication: LYME DISEASE
     Dosage: 500 MG, 2X/DAY
     Route: 048
     Dates: start: 20110610, end: 20110718
  4. LOSARTAN POTASSIUM [Suspect]
     Dosage: 25 MG, 1X/DAY
     Route: 048
     Dates: start: 20110718
  5. LEVOTHYROXINE SODIUM [Concomitant]
     Dosage: UNK
  6. AMLODIPINE BESYLATE [Interacting]
     Indication: HYPERTENSION
     Dosage: 5 MG, DAILY
     Route: 048
     Dates: end: 20110717
  7. BYSTOLIC [Suspect]
     Indication: HYPERTENSION
     Dosage: 2.5 MG, 1X/DAY
     Route: 048

REACTIONS (6)
  - HYPOTENSION [None]
  - JOINT SWELLING [None]
  - CONDITION AGGRAVATED [None]
  - OEDEMA [None]
  - OEDEMA PERIPHERAL [None]
  - DRUG INTERACTION [None]
